FAERS Safety Report 15565638 (Version 10)
Quarter: 2023Q4

REPORT INFORMATION
  Report Type: Report from Study
  Country: PT (occurrence: PT)
  Receive Date: 20181030
  Receipt Date: 20231129
  Transmission Date: 20240110
  Serious: Yes (Life-Threatening, Other)
  Sender: FDA-Public Use
  Company Number: None

PATIENT
  Age: 30 Year
  Sex: Male

DRUGS (27)
  1. BUPRENORPHINE [Suspect]
     Active Substance: BUPRENORPHINE
     Indication: Hepatitis C
     Dosage: UNK, (1 ML OF TRIAMCINOLONE 40 MG INJECTED)
     Route: 048
  2. BUPRENORPHINE [Suspect]
     Active Substance: BUPRENORPHINE
     Indication: HIV infection
     Dosage: UNK
     Route: 048
  3. BUPRENORPHINE [Suspect]
     Active Substance: BUPRENORPHINE
     Indication: Chronic hepatitis C
  4. TRAMADOL HYDROCHLORIDE [Suspect]
     Active Substance: TRAMADOL HYDROCHLORIDE
     Indication: HIV infection
     Dosage: UNK (1 ML OF TRIAMCINOLONE 40 MG)
     Route: 048
  5. TRAMADOL HYDROCHLORIDE [Suspect]
     Active Substance: TRAMADOL HYDROCHLORIDE
     Indication: Chronic hepatitis C
  6. TRAMADOL HYDROCHLORIDE [Suspect]
     Active Substance: TRAMADOL HYDROCHLORIDE
     Indication: Hepatitis C
  7. TRIAMCINOLONE [Suspect]
     Active Substance: TRIAMCINOLONE
     Indication: Product used for unknown indication
     Dosage: UNK (1 ML OF TRIAMCINOLONE 40 MG INJECTED)
     Route: 065
  8. AMPHOTERICIN B [Suspect]
     Active Substance: AMPHOTERICIN B
     Indication: HIV infection
     Dosage: UNK
     Route: 065
  9. AMPHOTERICIN B [Suspect]
     Active Substance: AMPHOTERICIN B
     Indication: Chronic hepatitis C
     Dosage: UNK (1 ML OF TRIAMCINOLONE 40 MG INJECTED)
     Route: 048
  10. AMPHOTERICIN B [Suspect]
     Active Substance: AMPHOTERICIN B
     Indication: Hepatitis C
  11. ALPRAZOLAM [Suspect]
     Active Substance: ALPRAZOLAM
     Indication: Hepatitis C
     Dosage: UNK (1 ML OF TRIAMCINOLONE 40 MG INJECTED)
     Route: 065
  12. ALPRAZOLAM [Suspect]
     Active Substance: ALPRAZOLAM
     Indication: Chronic hepatitis C
     Dosage: UNK
     Route: 065
  13. ALPRAZOLAM [Suspect]
     Active Substance: ALPRAZOLAM
     Indication: HIV infection
  14. ZIDOVUDINE [Suspect]
     Active Substance: ZIDOVUDINE
     Indication: Chronic hepatitis C
     Dosage: UNK
     Route: 065
  15. ZIDOVUDINE [Suspect]
     Active Substance: ZIDOVUDINE
     Indication: HIV infection
     Dosage: UNK
     Route: 048
  16. ZIDOVUDINE [Suspect]
     Active Substance: ZIDOVUDINE
     Indication: HIV infection CDC category C
  17. ZIDOVUDINE [Suspect]
     Active Substance: ZIDOVUDINE
     Indication: Hepatitis C
  18. FLURAZEPAM [Suspect]
     Active Substance: FLURAZEPAM HYDROCHLORIDE
     Indication: Chronic hepatitis C
     Dosage: UNK, (1 ML OF TRIAMCINOLONE 40 MG INJECTED)
     Route: 048
  19. FLURAZEPAM [Suspect]
     Active Substance: FLURAZEPAM HYDROCHLORIDE
     Indication: HIV infection
     Dosage: UNK
     Route: 065
  20. FLURAZEPAM [Suspect]
     Active Substance: FLURAZEPAM HYDROCHLORIDE
     Indication: Hepatitis C
  21. DIDANOSINE [Suspect]
     Active Substance: DIDANOSINE
     Indication: Chronic hepatitis C
     Dosage: UNK
     Route: 065
  22. DIDANOSINE [Suspect]
     Active Substance: DIDANOSINE
     Indication: Hepatitis C
     Dosage: UNK (1 ML OF TRIAMCINOLONE 40 MG INJECTED)
     Route: 048
  23. DIDANOSINE [Suspect]
     Active Substance: DIDANOSINE
     Indication: HIV infection
  24. LOPINAVIR\RITONAVIR [Suspect]
     Active Substance: LOPINAVIR\RITONAVIR
     Indication: Hepatitis C
     Dosage: UNK, (1 ML OF TRIAMCINOLONE 40 MG INJECTED)
     Route: 048
  25. LOPINAVIR\RITONAVIR [Suspect]
     Active Substance: LOPINAVIR\RITONAVIR
     Indication: Chronic hepatitis C
     Dosage: UNK
     Route: 065
  26. LOPINAVIR\RITONAVIR [Suspect]
     Active Substance: LOPINAVIR\RITONAVIR
     Indication: HIV infection
  27. OXAZEPAM [Suspect]
     Active Substance: OXAZEPAM
     Indication: Product used for unknown indication
     Dosage: UNK (1 ML OF TRIAMCINOLONE 40 MG INJECTED)
     Route: 048

REACTIONS (2)
  - Drug-induced liver injury [Recovered/Resolved]
  - Hepatic fibrosis [Unknown]
